FAERS Safety Report 5585797-X (Version None)
Quarter: 2008Q1

REPORT INFORMATION
  Report Type: 
  Country: None (occurrence: None)
  Receive Date: 20080109
  Receipt Date: 20071214
  Transmission Date: 20080703
  Serious: No
  Sender: FDA-Public Use
  Company Number: US-BAYER-200713472BCC

PATIENT
  Age: 28 Year
  Sex: Female
  Weight: 54 kg

DRUGS (4)
  1. ALEVE [Suspect]
     Indication: JOINT INJURY
     Dosage: TOTAL DAILY DOSE: 440 MG  UNIT DOSE: 220 MG
     Route: 048
     Dates: start: 20070919
  2. VITAMINS [Concomitant]
  3. BIRTH CONTROL PILLS [Concomitant]
  4. LEVAQUIN [Concomitant]

REACTIONS (2)
  - BRAIN STEM SYNDROME [None]
  - HEADACHE [None]
